FAERS Safety Report 5203869-6 (Version None)
Quarter: 2007Q1

REPORT INFORMATION
  Report Type: 
  Country: None (occurrence: None)
  Receive Date: 20070105
  Receipt Date: 20061219
  Transmission Date: 20070707
  Serious: Yes (Hospitalization)
  Sender: FDA-Public Use
  Company Number: GXKR2006US08318

PATIENT
  Age: 35 Year
  Sex: Female

DRUGS (5)
  1. ZONISAMIDE [Suspect]
  2. ACETAMINOPHEN/BUTALBITAL [Concomitant]
  3. CARBAMAZEPINE [Concomitant]
  4. TIZANIDINE HCL [Concomitant]
  5. FENTANYL [Concomitant]

REACTIONS (14)
  - ANTICONVULSANT DRUG LEVEL INCREASED [None]
  - ASPARTATE AMINOTRANSFERASE INCREASED [None]
  - BLOOD CHLORIDE DECREASED [None]
  - BLOOD POTASSIUM DECREASED [None]
  - COMA [None]
  - DRUG TOXICITY [None]
  - HEPATIC ENCEPHALOPATHY [None]
  - HEPATIC FUNCTION ABNORMAL [None]
  - INTENTIONAL OVERDOSE [None]
  - NO THERAPEUTIC RESPONSE [None]
  - PCO2 DECREASED [None]
  - PO2 INCREASED [None]
  - PROTHROMBIN TIME PROLONGED [None]
  - RENAL TUBULAR ACIDOSIS [None]
